FAERS Safety Report 8164967-0 (Version None)
Quarter: 2012Q1

REPORT INFORMATION
  Report Type: 
  Country: None (occurrence: None)
  Receive Date: 20120227
  Receipt Date: 20120216
  Transmission Date: 20120608
  Serious: No
  Sender: FDA-Public Use
  Company Number: US-BIOGENIDEC-2012BI006535

PATIENT
  Age: 35 Year
  Sex: Female

DRUGS (2)
  1. TYSABRI [Suspect]
     Indication: MULTIPLE SCLEROSIS
     Route: 042
     Dates: start: 20080908
  2. MEDICATIONS (NOS) [Concomitant]

REACTIONS (4)
  - ASTHENIA [None]
  - NARCOLEPSY [None]
  - ABDOMINAL DISCOMFORT [None]
  - WEIGHT DECREASED [None]
